FAERS Safety Report 9005530 (Version 3)
Quarter: 2013Q1

REPORT INFORMATION
  Report Type: Report from Study
  Country: JP (occurrence: JP)
  Receive Date: 20130109
  Receipt Date: 20130222
  Transmission Date: 20140127
  Serious: Yes (Life-Threatening, Hospitalization)
  Sender: FDA-Public Use
  Company Number: JP-PFIZER INC-2013010834

PATIENT
  Age: 73 Year
  Sex: Male

DRUGS (2)
  1. ESTRACYT [Suspect]
     Indication: PROSTATE CANCER
     Dosage: 626.8 MG, 1X/DAY
     Route: 048
     Dates: start: 20120515, end: 20120928
  2. LEUPLIN [Concomitant]
     Dosage: UNK
     Dates: start: 2012, end: 20130121

REACTIONS (1)
  - Cerebral infarction [Recovering/Resolving]
